FAERS Safety Report 17114797 (Version 1)
Quarter: 2019Q4

REPORT INFORMATION
  Report Type: Spontaneous
  Country: US (occurrence: US)
  Receive Date: 20191112
  Receipt Date: 20191112
  Transmission Date: 20200122
  Serious: Yes (Hospitalization)
  Sender: FDA-Public Use
  Company Number: None

PATIENT
  Age: 73 Year
  Sex: Male

DRUGS (16)
  1. ELIQUIS [Concomitant]
     Active Substance: APIXABAN
  2. FINASTERIDE. [Concomitant]
     Active Substance: FINASTERIDE
  3. POT CHLORIDE [Concomitant]
     Active Substance: POTASSIUM CHLORIDE
  4. HYDROCO/APAP [Concomitant]
     Active Substance: ACETAMINOPHEN\HYDROCODONE
  5. CARVEDILOL. [Concomitant]
     Active Substance: CARVEDILOL
  6. ISOSORB DIN [Concomitant]
  7. LINEZOLID. [Concomitant]
     Active Substance: LINEZOLID
  8. TORSEMIDE. [Concomitant]
     Active Substance: TORSEMIDE
  9. VALSARTAN. [Concomitant]
     Active Substance: VALSARTAN
  10. BOSULIF [Suspect]
     Active Substance: BOSUTINIB MONOHYDRATE
     Indication: CHRONIC MYELOID LEUKAEMIA
     Route: 048
     Dates: start: 20190719
  11. GABAPENTIN. [Concomitant]
     Active Substance: GABAPENTIN
  12. LEVOFLOXACIN. [Concomitant]
     Active Substance: LEVOFLOXACIN
  13. ALLOPURINOL. [Concomitant]
     Active Substance: ALLOPURINOL
  14. METFORMIN [Concomitant]
     Active Substance: METFORMIN HYDROCHLORIDE
  15. ROSUVASTATIN. [Concomitant]
     Active Substance: ROSUVASTATIN
  16. GEMFIBROZIL. [Concomitant]
     Active Substance: GEMFIBROZIL

REACTIONS (2)
  - Renal failure [None]
  - Knee arthroplasty [None]

NARRATIVE: CASE EVENT DATE: 20191105
